FAERS Safety Report 25664683 (Version 1)
Quarter: 2025Q3

REPORT INFORMATION
  Report Type: Spontaneous
  Country: GB (occurrence: GB)
  Receive Date: 20250811
  Receipt Date: 20250811
  Transmission Date: 20251021
  Serious: Yes (Hospitalization, Other)
  Sender: NOVARTIS
  Company Number: GB-002147023-NVSC2024GB147694

PATIENT
  Sex: Female

DRUGS (1)
  1. KESIMPTA [Suspect]
     Active Substance: OFATUMUMAB
     Indication: Secondary progressive multiple sclerosis
     Route: 065

REACTIONS (14)
  - Cerebrovascular accident [Unknown]
  - Central nervous system lesion [Unknown]
  - Dysarthria [Recovered/Resolved]
  - Malaise [Unknown]
  - Headache [Recovering/Resolving]
  - Vision blurred [Unknown]
  - Photophobia [Unknown]
  - Somnolence [Unknown]
  - Hypoaesthesia [Unknown]
  - Anxiety [Unknown]
  - Pharyngitis streptococcal [Unknown]
  - Secondary progressive multiple sclerosis [Unknown]
  - Burning sensation [Unknown]
  - Feeling abnormal [Unknown]
